FAERS Safety Report 6150768-1 (Version None)
Quarter: 2009Q2

REPORT INFORMATION
  Report Type: 
  Country: None (occurrence: None)
  Receive Date: 20090408
  Receipt Date: 20090326
  Transmission Date: 20091009
  Serious: Yes (Hospitalization)
  Sender: FDA-Public Use
  Company Number: 2009AL001703

PATIENT
  Age: 79 Year
  Sex: Male

DRUGS (10)
  1. DIGOXIN [Suspect]
     Dosage: PO
     Route: 048
  2. WARFARIN SODIUM [Concomitant]
  3. LABETALOL HCL [Concomitant]
  4. COZAAR [Concomitant]
  5. VIOXX [Concomitant]
  6. NITROGLYCERIN [Concomitant]
  7. NIACIN [Concomitant]
  8. FUROSEMIDE [Concomitant]
  9. NORVASC [Concomitant]
  10. OMEPRAZOLE [Concomitant]

REACTIONS (5)
  - ACUTE MYOCARDIAL INFARCTION [None]
  - CHEST DISCOMFORT [None]
  - CHEST PAIN [None]
  - DYSPEPSIA [None]
  - MYOCARDIAL ISCHAEMIA [None]
